FAERS Safety Report 7937290-4 (Version None)
Quarter: 2011Q4

REPORT INFORMATION
  Report Type: 
  Country: None (occurrence: None)
  Receive Date: 20111123
  Receipt Date: 20111115
  Transmission Date: 20120403
  Serious: Yes (Congenital Anomaly)
  Sender: FDA-Public Use
  Company Number: US-PFIZER INC-2011285408

PATIENT
  Sex: Male
  Weight: 3.2 kg

DRUGS (1)
  1. ZOLOFT [Suspect]
     Indication: DEPRESSION
     Dosage: 50 MG, UNK
     Route: 064
     Dates: start: 20050101

REACTIONS (2)
  - CARDIAC MURMUR [None]
  - MATERNAL EXPOSURE TIMING UNSPECIFIED [None]
